FAERS Safety Report 5339136-X (Version None)
Quarter: 2007Q2

REPORT INFORMATION
  Report Type: 
  Country: None (occurrence: None)
  Receive Date: 20070530
  Receipt Date: 20070522
  Transmission Date: 20071010
  Serious: Yes (Hospitalization, Other)
  Sender: FDA-Public Use
  Company Number: US-ABBOTT-07P-163-0368905-00

PATIENT
  Sex: Male

DRUGS (7)
  1. PIOGLITAZONE HYDROCHLORIDE (BLINDED) [Suspect]
     Indication: DIABETES MELLITUS NON-INSULIN-DEPENDENT
     Route: 048
     Dates: start: 20070417, end: 20070509
  2. CARVEDILOL [Concomitant]
     Indication: HYPERTENSION
     Route: 048
     Dates: start: 19951012
  3. HYZAAR [Concomitant]
     Indication: HYPERTENSION
     Dosage: 100/25 MILLIGRAMS
     Route: 048
     Dates: start: 19921205
  4. NAPROXEN [Concomitant]
     Indication: NEUROPATHY PERIPHERAL
     Route: 048
     Dates: start: 19951120
  5. VERAPAMIL [Concomitant]
     Indication: HYPERTENSION
     Route: 048
     Dates: start: 20070418
  6. METFORMIN HCL [Concomitant]
     Indication: DIABETES MELLITUS NON-INSULIN-DEPENDENT
     Route: 048
     Dates: start: 20070330
  7. SYR-322 [Concomitant]
     Indication: DIABETES MELLITUS NON-INSULIN-DEPENDENT
     Route: 048
     Dates: start: 20070417, end: 20070509

REACTIONS (1)
  - CEREBROVASCULAR ACCIDENT [None]
